FAERS Safety Report 9101316 (Version 4)
Quarter: 2013Q2

REPORT INFORMATION
  Report Type: Report from Study
  Country: US (occurrence: US)
  Receive Date: 20130218
  Receipt Date: 20130405
  Transmission Date: 20140414
  Serious: Yes (Other)
  Sender: FDA-Public Use
  Company Number: US-ABBOTT-13P-163-1049451-00

PATIENT
  Age: 38 Year
  Sex: Female
  Weight: 83.54 kg

DRUGS (2)
  1. HUMIRA [Suspect]
     Indication: CROHN^S DISEASE
     Dates: start: 201203
  2. VITAMIN B12 [Concomitant]
     Indication: PRODUCT USED FOR UNKNOWN INDICATION
     Route: 050

REACTIONS (4)
  - Fistula [Not Recovered/Not Resolved]
  - Anal fistula [Recovering/Resolving]
  - Impaired healing [Recovering/Resolving]
  - Drug ineffective [Not Recovered/Not Resolved]
